FAERS Safety Report 4372145-6 (Version None)
Quarter: 2004Q2

REPORT INFORMATION
  Report Type: 
  Country: None (occurrence: None)
  Receive Date: 20040603
  Receipt Date: 20040603
  Transmission Date: 20050107
  Serious: Yes (Hospitalization)
  Sender: FDA-Public Use
  Company Number: None

PATIENT
  Weight: 79.3795 kg

DRUGS (10)
  1. EZETIMIBE  10MG [Suspect]
     Indication: DYSLIPIDAEMIA
     Dosage: 10 MG QD ORAL
     Route: 048
     Dates: start: 20031222, end: 20040309
  2. PREDNISONE [Concomitant]
  3. MAGNESIUM GLUCONATE [Concomitant]
  4. FOLIC ACID [Concomitant]
  5. CYANOCOBALAMIN [Concomitant]
  6. PYRIDOXINE [Concomitant]
  7. AZATHIOPRINE [Concomitant]
  8. ATORVASTATIN CALCIUM [Concomitant]
  9. TERAZOSIN HCL [Concomitant]
  10. CYCLOSPORINE [Concomitant]

REACTIONS (9)
  - ALANINE AMINOTRANSFERASE INCREASED [None]
  - ASPARTATE AMINOTRANSFERASE INCREASED [None]
  - BLOOD CREATINE PHOSPHOKINASE INCREASED [None]
  - BLOOD CREATININE INCREASED [None]
  - CONDITION AGGRAVATED [None]
  - FEELING ABNORMAL [None]
  - INFLUENZA [None]
  - MYALGIA [None]
  - MYOPATHY [None]
